FAERS Safety Report 11461084 (Version 1)
Quarter: 2015Q3

REPORT INFORMATION
  Report Type: Spontaneous
  Country: US (occurrence: US)
  Receive Date: 20150831
  Receipt Date: 20150831
  Transmission Date: 20151125
  Serious: No
  Sender: FDA-Public Use
  Company Number: US-ELI_LILLY_AND_COMPANY-US201006004183

PATIENT
  Sex: Female

DRUGS (2)
  1. CYMBALTA [Suspect]
     Active Substance: DULOXETINE HYDROCHLORIDE
     Dosage: 30 MG, DAILY (1/D)
  2. CYMBALTA [Suspect]
     Active Substance: DULOXETINE HYDROCHLORIDE
     Indication: PAIN
     Dosage: 20 MG, DAILY (1/D)

REACTIONS (9)
  - Arthralgia [Not Recovered/Not Resolved]
  - Nerve compression [Unknown]
  - Adverse drug reaction [Not Recovered/Not Resolved]
  - Hallucination [Unknown]
  - Off label use [Not Recovered/Not Resolved]
  - Wrist fracture [Unknown]
  - Depression [Not Recovered/Not Resolved]
  - Drug interaction [Unknown]
  - Dementia [Not Recovered/Not Resolved]
